FAERS Safety Report 9681705 (Version 3)
Quarter: 2015Q2

REPORT INFORMATION
  Report Type: Spontaneous
  Country: US (occurrence: US)
  Receive Date: 20131111
  Receipt Date: 20150408
  Transmission Date: 20150821
  Serious: Yes (Hospitalization, Other)
  Sender: FDA-Public Use
  Company Number: US-GLAXOSMITHKLINE-A1036480A

PATIENT
  Sex: Female

DRUGS (6)
  1. FLOLAN [Suspect]
     Active Substance: EPOPROSTENOL SODIUM
     Dosage: UNK
     Dates: start: 20050120
  2. COUMADIN [Concomitant]
     Active Substance: WARFARIN SODIUM
  3. FLOLAN [Suspect]
     Active Substance: EPOPROSTENOL SODIUM
     Indication: PULMONARY ARTERIAL HYPERTENSION
     Dosage: DOSE 29 NG/KG/MIN, CONCENTRATION 30,000 NG/ML, VIAL STRENGTH 1.5 MG
     Route: 042
     Dates: start: 20050120
  4. LETAIRIS [Concomitant]
     Active Substance: AMBRISENTAN
  5. ADCIRCA [Concomitant]
     Active Substance: TADALAFIL
  6. FLOLAN [Suspect]
     Active Substance: EPOPROSTENOL SODIUM
     Dosage: 29 NG/KG/MIN

REACTIONS (4)
  - Device leakage [Not Recovered/Not Resolved]
  - Drug dose omission [Unknown]
  - Device related infection [Unknown]
  - Catheterisation cardiac [Unknown]
